FAERS Safety Report 7123533-6 (Version None)
Quarter: 2010Q4

REPORT INFORMATION
  Report Type: 
  Country: None (occurrence: None)
  Receive Date: 20101125
  Receipt Date: 20101115
  Transmission Date: 20110411
  Serious: Yes (Hospitalization)
  Sender: FDA-Public Use
  Company Number: JP-PFIZER INC-JP-WYE-H18024410

PATIENT
  Age: 50 Year
  Sex: Female
  Weight: 39 kg

DRUGS (10)
  1. ENBREL [Suspect]
     Indication: RHEUMATOID ARTHRITIS
     Dosage: 25MG TWICE WEEKLY
     Route: 058
     Dates: start: 20100401, end: 20100925
  2. RHEUMATREX [Suspect]
     Indication: RHEUMATOID ARTHRITIS
     Dosage: 4 MG, WEEKLY
     Route: 048
     Dates: start: 20100401, end: 20100608
  3. RHEUMATREX [Suspect]
     Dosage: 2 MG, 3X/WEEK
     Route: 048
     Dates: start: 20100609, end: 20100825
  4. RHEUMATREX [Suspect]
     Dosage: 2 MG, 4X/WEEK
     Route: 048
     Dates: start: 20100826, end: 20100917
  5. MEDROL [Suspect]
     Indication: RHEUMATOID ARTHRITIS
     Dosage: 2 MG, 1X/DAY
     Route: 048
     Dates: start: 20030601, end: 20100917
  6. CELECOXIB [Concomitant]
     Indication: RHEUMATOID ARTHRITIS
     Dosage: 300 MG, 2X/DAY
     Route: 048
     Dates: start: 20090603, end: 20100608
  7. LOXONIN [Concomitant]
     Indication: RHEUMATOID ARTHRITIS
     Dosage: 60 MG, 3X/DAY
     Route: 048
     Dates: start: 20100609
  8. ACINON [Concomitant]
     Indication: GASTRITIS
     Dosage: 75 MG, 2X/DAY
     Route: 048
     Dates: start: 20080109, end: 20100608
  9. REBAMIPIDE [Concomitant]
     Indication: GASTRITIS
     Dosage: 100 MG, 3X/DAY
     Route: 048
     Dates: start: 20100609
  10. OMEPRAL [Concomitant]
     Indication: GASTRITIS
     Dosage: 20 MG, 1X/DAY
     Route: 048
     Dates: start: 20100609

REACTIONS (1)
  - PNEUMOCYSTIS JIROVECI PNEUMONIA [None]
